APPROVED DRUG PRODUCT: OXYTOCIN
Active Ingredient: OXYTOCIN
Strength: 100USP UNITS/10ML (10USP UNITS/ML)
Dosage Form/Route: INJECTABLE;INJECTION
Application: N018243 | Product #002 | TE Code: AP
Applicant: HIKMA PHARMACEUTICALS USA INC
Approved: Jan 10, 2007 | RLD: Yes | RS: Yes | Type: RX